FAERS Safety Report 11814722 (Version 1)
Quarter: 2015Q4

REPORT INFORMATION
  Report Type: Spontaneous
  Country: US (occurrence: None)
  Receive Date: 20151208
  Receipt Date: 20151208
  Transmission Date: 20160305
  Serious: Yes (Other)
  Sender: FDA-Public Use
  Company Number: None

PATIENT
  Age: 66 Year
  Sex: Female
  Weight: 57.61 kg

DRUGS (7)
  1. ZYPREXA [Concomitant]
     Active Substance: OLANZAPINE
  2. ZOLPIDEM [Concomitant]
     Active Substance: ZOLPIDEM\ZOLPIDEM TARTRATE
  3. GAPAPENTIN [Concomitant]
  4. METROFORMIN [Concomitant]
  5. EMSAM [Suspect]
     Active Substance: SELEGILINE
     Indication: DEPRESSION
     Dosage: 30 1 PATCH DAILY APPLIED TO SKIN ROTATE APPLICATIONS SITES DAILY
     Route: 061
     Dates: start: 201501
  6. LAMOTRIGINE. [Concomitant]
     Active Substance: LAMOTRIGINE
  7. VITAMIN D [Concomitant]
     Active Substance: CHOLECALCIFEROL

REACTIONS (2)
  - Application site discolouration [None]
  - Application site reaction [None]

NARRATIVE: CASE EVENT DATE: 201501
